FAERS Safety Report 21341431 (Version 1)
Quarter: 2022Q3

REPORT INFORMATION
  Report Type: Spontaneous
  Country: US (occurrence: None)
  Receive Date: 20220915
  Receipt Date: 20220915
  Transmission Date: 20221027
  Serious: Yes (Death)
  Sender: FDA-Public Use
  Company Number: None

PATIENT
  Age: 72 Year
  Sex: Male
  Weight: 46.27 kg

DRUGS (9)
  1. CAPECITABINE [Suspect]
     Active Substance: CAPECITABINE
     Indication: Essential thrombocythaemia
     Dosage: OTHER FREQUENCY : 2W,1WOFF;?
     Route: 048
  2. CLINDAGEL [Concomitant]
  3. DOXYCYCLINE HYCLATE [Concomitant]
  4. ECONAZOLE NITRATE [Concomitant]
  5. LORAZEPAM [Concomitant]
  6. GABAPENTIN [Concomitant]
  7. HYDREA [Concomitant]
  8. NYSTATIN [Concomitant]
  9. XANAX [Concomitant]
     Active Substance: ALPRAZOLAM

REACTIONS (1)
  - Death [None]
